FAERS Safety Report 25014364 (Version 1)
Quarter: 2025Q1

REPORT INFORMATION
  Report Type: Spontaneous
  Country: FR (occurrence: FR)
  Receive Date: 20250226
  Receipt Date: 20250226
  Transmission Date: 20250408
  Serious: Yes (Hospitalization)
  Sender: TEVA
  Company Number: None

PATIENT
  Age: 23 Year
  Sex: Female
  Weight: 68 kg

DRUGS (4)
  1. COTRIMOXAZOLE [Suspect]
     Active Substance: SULFAMETHOXAZOLE\TRIMETHOPRIM
     Indication: Prophylaxis
     Dosage: COTRIMOXAZOLE TEVA 800 MG/160 MG
     Route: 048
     Dates: start: 20241109, end: 20241204
  2. COLCHICINE [Suspect]
     Active Substance: COLCHICINE
     Indication: Pericarditis lupus
     Route: 048
     Dates: start: 20241202, end: 20241202
  3. COLCHICINE [Suspect]
     Active Substance: COLCHICINE
     Indication: Pericarditis lupus
     Route: 048
     Dates: start: 20241206, end: 20241210
  4. KARDEGIC [Suspect]
     Active Substance: ASPIRIN DL-LYSINE
     Indication: Pericarditis lupus
     Route: 048
     Dates: start: 20241202, end: 20241204

REACTIONS (1)
  - Rash morbilliform [Recovered/Resolved]

NARRATIVE: CASE EVENT DATE: 20241206
